FAERS Safety Report 24595871 (Version 1)
Quarter: 2024Q4

REPORT INFORMATION
  Report Type: Spontaneous
  Country: US (occurrence: US)
  Receive Date: 20241109
  Receipt Date: 20241109
  Transmission Date: 20250115
  Serious: No
  Sender: Kenvue
  Company Number: US-KENVUE-20241029109

PATIENT
  Age: 91 Year
  Sex: Female

DRUGS (1)
  1. ZYRTEC [Suspect]
     Active Substance: CETIRIZINE HYDROCHLORIDE
     Indication: Oropharyngeal discomfort
     Dosage: 10 MILLIGRAM, ONCE A DAY
     Route: 048
     Dates: start: 20241011, end: 20241012

REACTIONS (3)
  - Asthenia [Recovering/Resolving]
  - Somnolence [Recovering/Resolving]
  - Headache [Recovering/Resolving]

NARRATIVE: CASE EVENT DATE: 20241012
